FAERS Safety Report 5525531-2 (Version None)
Quarter: 2007Q4

REPORT INFORMATION
  Report Type: 
  Country: None (occurrence: None)
  Receive Date: 20071126
  Receipt Date: 20071119
  Transmission Date: 20080405
  Serious: Yes (Other)
  Sender: FDA-Public Use
  Company Number: A0695698A

PATIENT
  Age: 62 Year
  Sex: Female
  Weight: 72 kg

DRUGS (1)
  1. AVANDIA [Suspect]
     Dosage: 5MG PER DAY
     Route: 048
     Dates: start: 20050101, end: 20071116

REACTIONS (3)
  - BLADDER OPERATION [None]
  - HYPOCHOLESTEROLAEMIA [None]
  - PHARMACEUTICAL PRODUCT COMPLAINT [None]
